FAERS Safety Report 15670053 (Version 1)
Quarter: 2018Q4

REPORT INFORMATION
  Report Type: Spontaneous
  Country: US (occurrence: US)
  Receive Date: 20181129
  Receipt Date: 20181129
  Transmission Date: 20190205
  Serious: No
  Sender: FDA-Public Use
  Company Number: US-CHIESI USA, INC.-US-2018CHI000291

PATIENT

DRUGS (2)
  1. BETHKIS [Suspect]
     Active Substance: TOBRAMYCIN
     Indication: BRONCHIECTASIS
     Dosage: 300 MG, BIW
     Route: 055
     Dates: start: 20180808, end: 20180812
  2. BETHKIS [Suspect]
     Active Substance: TOBRAMYCIN
     Indication: OFF LABEL USE

REACTIONS (7)
  - Oropharyngeal pain [Unknown]
  - Pain [Unknown]
  - Inappropriate schedule of product administration [Recovered/Resolved]
  - Dysphonia [Unknown]
  - Aphonia [Recovered/Resolved]
  - Headache [Unknown]
  - Off label use [Recovered/Resolved]

NARRATIVE: CASE EVENT DATE: 20180808
